FAERS Safety Report 4845312-2 (Version None)
Quarter: 2005Q4

REPORT INFORMATION
  Report Type: 
  Country: None (occurrence: None)
  Receive Date: 20051205
  Receipt Date: 20051109
  Transmission Date: 20060501
  Serious: Yes (Hospitalization, Other)
  Sender: FDA-Public Use
  Company Number: 2005JP002141

PATIENT
  Age: 13 Year

DRUGS (8)
  1. CEFAZOLIN [Suspect]
     Indication: PROPHYLAXIS
     Dosage: 2G PER DAY
     Route: 042
     Dates: start: 20051031, end: 20051101
  2. LOXONIN [Suspect]
     Indication: PAIN
     Route: 048
     Dates: start: 20051101, end: 20051102
  3. VOLTAREN [Suspect]
     Indication: PAIN
     Route: 054
     Dates: start: 20051031, end: 20051101
  4. VECURONIUM BROMIDE [Suspect]
     Dates: start: 20051031, end: 20051031
  5. ISOFLURANE [Suspect]
     Dates: start: 20051031, end: 20051031
  6. DIPRIVAN [Suspect]
     Dates: start: 20051031, end: 20051031
  7. ZYRTEC [Concomitant]
  8. MUCOSTA [Concomitant]

REACTIONS (6)
  - ALANINE AMINOTRANSFERASE INCREASED [None]
  - ASPARTATE AMINOTRANSFERASE INCREASED [None]
  - BLOOD CREATINE PHOSPHOKINASE INCREASED [None]
  - BLOOD LACTATE DEHYDROGENASE INCREASED [None]
  - HEPATIC FUNCTION ABNORMAL [None]
  - MALAISE [None]
